FAERS Safety Report 7269788-9 (Version None)
Quarter: 2011Q1

REPORT INFORMATION
  Report Type: 
  Country: None (occurrence: None)
  Receive Date: 20110124
  Receipt Date: 20110111
  Transmission Date: 20110831
  Serious: Yes (Hospitalization, Other)
  Sender: FDA-Public Use
  Company Number: 2010AC000093

PATIENT
  Sex: Female

DRUGS (39)
  1. DIGOXIN [Suspect]
     Indication: CARDIOMYOPATHY
     Dosage: 0.25 MG;QD;PO
     Route: 048
     Dates: start: 20080403
  2. RADIATIO [Concomitant]
  3. NOVOLOG [Concomitant]
  4. HUMULIN INSULIN [Concomitant]
  5. REZULIN [Concomitant]
  6. PROPULSID [Concomitant]
  7. LEVAQUIN [Concomitant]
  8. LANTUS [Concomitant]
  9. METOLAZONE [Concomitant]
  10. NITROLINGUAL [Concomitant]
  11. KLOR-CON [Concomitant]
  12. PROTONIX [Concomitant]
  13. ASPIRIN [Concomitant]
  14. IORN SULFATE [Concomitant]
  15. ATIVAN [Concomitant]
  16. ALBUTEROL INHALER [Concomitant]
  17. LIPITOR [Concomitant]
  18. CARVEDILOL [Concomitant]
  19. AMLODIPINE BESYLATE [Concomitant]
  20. ACCURPRIL [Concomitant]
  21. DIGIBIND [Concomitant]
  22. COUMADIN [Concomitant]
  23. AMBIEN [Concomitant]
  24. ZAROXOLYN [Concomitant]
  25. POTASSIUM [Concomitant]
  26. CARTIA XT [Concomitant]
  27. REVATIO [Concomitant]
  28. MEDROL [Concomitant]
  29. BACTRIM [Concomitant]
  30. DIOCAN [Concomitant]
  31. SPIRIVA [Concomitant]
  32. THEOPHYLLINE [Concomitant]
  33. MECLIZINE [Concomitant]
  34. ZOCOR [Concomitant]
  35. ROCEPHIN [Concomitant]
  36. LASIX [Concomitant]
  37. HYOSCYAMINE [Concomitant]
  38. ALLOPURINOL [Concomitant]
  39. COLCHICINE [Concomitant]

REACTIONS (32)
  - PLEURAL EFFUSION [None]
  - ABSCESS LIMB [None]
  - ATELECTASIS [None]
  - LUNG INFILTRATION [None]
  - MULTIPLE INJURIES [None]
  - CELLULITIS [None]
  - ABDOMINAL DISTENSION [None]
  - PRODUCT QUALITY ISSUE [None]
  - CARDIAC FAILURE [None]
  - OESOPHAGEAL CANDIDIASIS [None]
  - RENAL ATROPHY [None]
  - BLOOD CHLORIDE DECREASED [None]
  - HYPOVOLAEMIA [None]
  - GASTRIC ULCER [None]
  - DIABETES MELLITUS INADEQUATE CONTROL [None]
  - BLOOD ALKALINE PHOSPHATASE INCREASED [None]
  - URINARY TRACT INFECTION [None]
  - RENAL FAILURE ACUTE [None]
  - GOUT [None]
  - CEREBRAL INFARCTION [None]
  - ATRIAL FIBRILLATION [None]
  - DRUG INEFFECTIVE [None]
  - CARBON DIOXIDE INCREASED [None]
  - BLOOD SODIUM DECREASED [None]
  - GASTROINTESTINAL HAEMORRHAGE [None]
  - TOXICITY TO VARIOUS AGENTS [None]
  - PAIN [None]
  - DIZZINESS [None]
  - DIARRHOEA [None]
  - GENERAL PHYSICAL HEALTH DETERIORATION [None]
  - PULMONARY CONGESTION [None]
  - FLUID OVERLOAD [None]
